FAERS Safety Report 12136294 (Version 1)
Quarter: 2016Q1

REPORT INFORMATION
  Report Type: Spontaneous
  Country: US (occurrence: None)
  Receive Date: 20160301
  Receipt Date: 20160301
  Transmission Date: 20160526
  Serious: Yes (Hospitalization)
  Sender: FDA-Public Use
  Company Number: None

PATIENT
  Age: 66 Year
  Sex: Male

DRUGS (20)
  1. SIROLIMUS. [Concomitant]
     Active Substance: SIROLIMUS
  2. EXJADE [Suspect]
     Active Substance: DEFERASIROX
     Indication: BLOOD TEST ABNORMAL
     Route: 048
     Dates: start: 20151103
  3. ACYCLOVIR. [Concomitant]
     Active Substance: ACYCLOVIR
  4. FLECAINIDE [Concomitant]
     Active Substance: FLECAINIDE
  5. OMEPRAZOLE. [Concomitant]
     Active Substance: OMEPRAZOLE
  6. PREDNISONE. [Concomitant]
     Active Substance: PREDNISONE
  7. FOLIC ACID. [Concomitant]
     Active Substance: FOLIC ACID
  8. MULTI-VITE [Concomitant]
  9. BENADRYL [Concomitant]
     Active Substance: DIPHENHYDRAMINE HYDROCHLORIDE
  10. MAGN OXIDE [Concomitant]
  11. ROPINIROLE. [Concomitant]
     Active Substance: ROPINIROLE
  12. SELENIUM [Concomitant]
     Active Substance: SELENIUM
  13. TYLENOL PM [Concomitant]
     Active Substance: ACETAMINOPHEN\DIPHENHYDRAMINE
  14. BACTRIM [Concomitant]
     Active Substance: SULFAMETHOXAZOLE\TRIMETHOPRIM
  15. LEVOTHYROXIN [Concomitant]
     Active Substance: LEVOTHYROXINE
  16. PRADAXA [Concomitant]
     Active Substance: DABIGATRAN ETEXILATE MESYLATE
  17. ATORVASTATIN [Concomitant]
     Active Substance: ATORVASTATIN
  18. LASIX [Concomitant]
     Active Substance: FUROSEMIDE
  19. OXYCODONE [Concomitant]
     Active Substance: OXYCODONE
  20. VITAMIN D3 [Concomitant]
     Active Substance: CHOLECALCIFEROL

REACTIONS (2)
  - Cardiac pacemaker removal [None]
  - Therapy cessation [None]

NARRATIVE: CASE EVENT DATE: 20160222
